FAERS Safety Report 5403861-2 (Version None)
Quarter: 2007Q3

REPORT INFORMATION
  Report Type: 
  Country: None (occurrence: None)
  Receive Date: 20070802
  Receipt Date: 20070727
  Transmission Date: 20080115
  Serious: Yes (Hospitalization, Other)
  Sender: FDA-Public Use
  Company Number: FR-BRISTOL-MYERS SQUIBB COMPANY-13862164

PATIENT
  Age: 61 Year
  Sex: Male
  Weight: 62 kg

DRUGS (4)
  1. REYATAZ [Suspect]
     Indication: HIV INFECTION
     Route: 048
     Dates: start: 20050415
  2. ZYPREXA [Suspect]
     Dates: start: 20060615, end: 20070414
  3. NORVIR [Suspect]
  4. VIDEX [Concomitant]
     Dates: start: 20050715

REACTIONS (2)
  - EXTRAPYRAMIDAL DISORDER [None]
  - PARKINSONISM [None]
